FAERS Safety Report 11312274 (Version 1)
Quarter: 2015Q3

REPORT INFORMATION
  Report Type: Spontaneous
  Country: US (occurrence: None)
  Receive Date: 20150723
  Receipt Date: 20150723
  Transmission Date: 20151125
  Serious: Yes (Other)
  Sender: FDA-Public Use
  Company Number: CM15-0032A

PATIENT
  Age: 40 Year
  Sex: Female

DRUGS (1)
  1. PHYTONADIONE INJECTION [Suspect]
     Active Substance: PHYTONADIONE
     Indication: PRODUCT USED FOR UNKNOWN INDICATION

REACTIONS (2)
  - Accidental exposure to product [None]
  - Injury associated with device [None]

NARRATIVE: CASE EVENT DATE: 20150708
